FAERS Safety Report 24368753 (Version 2)
Quarter: 2024Q4

REPORT INFORMATION
  Report Type: Report from Study
  Country: US (occurrence: US)
  Receive Date: 20240927
  Receipt Date: 20241007
  Transmission Date: 20250115
  Serious: Yes (Hospitalization)
  Sender: ABBVIE
  Company Number: US-ABBVIE-5931156

PATIENT
  Age: 53 Year
  Sex: Female
  Weight: 61 kg

DRUGS (17)
  1. VENCLEXTA [Suspect]
     Active Substance: VENETOCLAX
     Indication: Acute myeloid leukaemia recurrent
     Dosage: 10 MILLIGRAM
     Route: 048
     Dates: start: 20240909, end: 20240913
  2. VENCLEXTA [Suspect]
     Active Substance: VENETOCLAX
     Indication: Acute myeloid leukaemia recurrent
     Dosage: 50 MILLIGRAM
     Route: 048
     Dates: start: 20240913, end: 20240913
  3. VENCLEXTA [Suspect]
     Active Substance: VENETOCLAX
     Indication: Acute myeloid leukaemia recurrent
     Dosage: FREQUENCY : 50MG + 2 10MG TABLET ONCE A DAY?DRUG END DATE: SEP 2024
     Route: 048
     Dates: start: 20240914
  4. VENCLEXTA [Suspect]
     Active Substance: VENETOCLAX
     Indication: Acute myeloid leukaemia recurrent
     Route: 048
     Dates: start: 202409
  5. LEVOFLOXACIN [Concomitant]
     Active Substance: LEVOFLOXACIN
     Indication: Leukaemia
     Dosage: 750 MILLIGRAM
  6. VENLAFAXINE [Concomitant]
     Active Substance: VENLAFAXINE HYDROCHLORIDE
     Indication: Product used for unknown indication
  7. DEFERASIROX [Concomitant]
     Active Substance: DEFERASIROX
     Indication: Leukaemia
  8. ANASTROZOLE [Concomitant]
     Active Substance: ANASTROZOLE
     Indication: Oestrogen replacement therapy
  9. POSACONAZOLE [Concomitant]
     Active Substance: POSACONAZOLE
     Indication: Leukaemia
  10. AMLODIPINE [Concomitant]
     Active Substance: AMLODIPINE BESYLATE
     Indication: Leukaemia
     Dosage: 5 MILLIGRAM
  11. METFORMIN [Concomitant]
     Active Substance: METFORMIN HYDROCHLORIDE
     Indication: Diabetes mellitus
     Dosage: 750 MILLIGRAM
  12. ACYCLOVIR [Concomitant]
     Active Substance: ACYCLOVIR
     Indication: Leukaemia
     Dosage: 400 MILLIGRAM
  13. ALLOPURINOL [Concomitant]
     Active Substance: ALLOPURINOL
     Indication: Leukaemia
     Dosage: 300 MILLIGRAM
  14. FAMOTIDINE [Concomitant]
     Active Substance: FAMOTIDINE
     Indication: Leukaemia
     Dosage: 20 MILLIGRAM
  15. ONDANSETRON [Concomitant]
     Active Substance: ONDANSETRON
     Indication: Nausea
  16. URSODIOL [Concomitant]
     Active Substance: URSODIOL
     Indication: Leukaemia
  17. POTASSIUM CHLORIDE [Concomitant]
     Active Substance: POTASSIUM CHLORIDE
     Indication: Leukaemia

REACTIONS (1)
  - Klebsiella infection [Recovered/Resolved]

NARRATIVE: CASE EVENT DATE: 20240911
